FAERS Safety Report 8290460-0 (Version None)
Quarter: 2012Q2

REPORT INFORMATION
  Report Type: 
  Country: None (occurrence: None)
  Receive Date: 20120417
  Receipt Date: 20110315
  Transmission Date: 20120825
  Serious: No
  Sender: FDA-Public Use
  Company Number: US-ASTRAZENECA-2009UW02991

PATIENT
  Age: 60 Year
  Sex: Female

DRUGS (2)
  1. NEXIUM [Suspect]
     Indication: HERNIA
     Route: 048
     Dates: start: 20080101
  2. NEXIUM [Suspect]
     Route: 048
     Dates: start: 20080101

REACTIONS (9)
  - OESOPHAGITIS [None]
  - DIARRHOEA [None]
  - VOMITING [None]
  - OFF LABEL USE [None]
  - STRESS [None]
  - FLUSHING [None]
  - ERYTHEMA [None]
  - FLATULENCE [None]
  - DYSPEPSIA [None]
